FAERS Safety Report 6816953-8 (Version None)
Quarter: 2010Q3

REPORT INFORMATION
  Report Type: 
  Country: None (occurrence: None)
  Receive Date: 20100706
  Receipt Date: 20100621
  Transmission Date: 20110219
  Serious: Yes (Death)
  Sender: FDA-Public Use
  Company Number: DE-WYE-G06048110

PATIENT
  Sex: Male

DRUGS (11)
  1. IBUPROFEN [Suspect]
     Indication: PAIN
     Dosage: 600 MG
     Route: 048
     Dates: start: 20080727
  2. CYNT [Suspect]
     Indication: CARDIAC FAILURE
     Dosage: 0.3 MG
     Route: 048
     Dates: start: 20080728
  3. TORASEMIDE [Suspect]
     Indication: HYPERTENSION
     Route: 048
     Dates: start: 20070101
  4. ALLOPURINOL [Suspect]
     Indication: HYPERURICAEMIA
     Route: 048
     Dates: start: 20080724
  5. FOLIC ACID [Suspect]
  6. ACETYLSALICYLIC ACID [Suspect]
     Indication: THROMBOSIS PROPHYLAXIS
     Dosage: 100 MG
     Route: 048
     Dates: start: 20080727
  7. BETAISODONA [Suspect]
     Dosage: UKN
     Route: 061
     Dates: start: 20080728
  8. DEXA POLYSPECTRAN N [Suspect]
     Indication: CONJUNCTIVITIS
     Dosage: UKN
     Route: 047
     Dates: start: 20080724
  9. FERROUS GLUCONATE [Suspect]
  10. DETRUSITOL [Suspect]
     Indication: INCONTINENCE
     Route: 048
     Dates: start: 20080727
  11. NOVODIGAL [Suspect]
     Indication: CARDIAC FAILURE
     Route: 048
     Dates: start: 20080727

REACTIONS (1)
  - STEVENS-JOHNSON SYNDROME [None]
